FAERS Safety Report 6962201-8 (Version None)
Quarter: 2010Q3

REPORT INFORMATION
  Report Type: 
  Country: None (occurrence: None)
  Receive Date: 20100901
  Receipt Date: 20100901
  Transmission Date: 20110219
  Serious: Yes (Hospitalization)
  Sender: FDA-Public Use
  Company Number: None

PATIENT
  Sex: Female
  Weight: 101 kg

DRUGS (2)
  1. INTRON A [Suspect]
     Dosage: 45000000 UNIT
     Dates: end: 20100828
  2. SANDOSTATIN [Suspect]
     Dosage: 20 MG
     Dates: end: 20100810

REACTIONS (2)
  - ANAPHYLACTIC REACTION [None]
  - CONTRAST MEDIA REACTION [None]
